FAERS Safety Report 7645056-8 (Version None)
Quarter: 2011Q3

REPORT INFORMATION
  Report Type: 
  Country: None (occurrence: None)
  Receive Date: 20110729
  Receipt Date: 20110725
  Transmission Date: 20111222
  Serious: Yes (Other)
  Sender: FDA-Public Use
  Company Number: DE-GLAXOSMITHKLINE-D0072193A

PATIENT
  Sex: Male
  Weight: 90 kg

DRUGS (3)
  1. VALPROIC ACID [Concomitant]
     Route: 065
  2. LAMOTRIGINE [Concomitant]
     Route: 065
  3. CEFUHEXAL [Suspect]
     Indication: TONSILLITIS
     Dosage: 500MG TWICE PER DAY
     Route: 048
     Dates: start: 20110713, end: 20110713

REACTIONS (1)
  - EPILEPSY [None]
